FAERS Safety Report 9922260 (Version 1)
Quarter: 2014Q1

REPORT INFORMATION
  Report Type: Spontaneous
  Country: US (occurrence: US)
  Receive Date: 20140225
  Receipt Date: 20140225
  Transmission Date: 20141002
  Serious: Yes (Other)
  Sender: FDA-Public Use
  Company Number: US-JNJFOC-20140211594

PATIENT
  Sex: Female

DRUGS (7)
  1. XARELTO [Suspect]
     Indication: PRODUCT USED FOR UNKNOWN INDICATION
     Route: 048
     Dates: start: 20140127
  2. XARELTO [Suspect]
     Indication: PRODUCT USED FOR UNKNOWN INDICATION
     Route: 048
  3. FENTANYL [Concomitant]
     Route: 062
  4. AMOXICILLIN [Concomitant]
     Route: 065
     Dates: start: 20140204
  5. OMEPRAZOLE [Concomitant]
     Route: 048
  6. LOVASTATIN [Concomitant]
     Route: 048
  7. CARVEDILOL [Concomitant]
     Route: 065

REACTIONS (1)
  - Rash [Unknown]
